FAERS Safety Report 4428058-4 (Version None)
Quarter: 2004Q3

REPORT INFORMATION
  Report Type: 
  Country: None (occurrence: None)
  Receive Date: 20040726
  Receipt Date: 20040302
  Transmission Date: 20050211
  Serious: No
  Sender: FDA-Public Use
  Company Number: USA030947519

PATIENT
  Age: 82 Year
  Sex: Female
  Weight: 74 kg

DRUGS (5)
  1. FORTEO [Suspect]
     Indication: OSTEOPOROSIS
     Dosage: 20 UG/DAY
     Dates: start: 20030827
  2. ZANTAC [Concomitant]
  3. SYNTHROID [Concomitant]
  4. DIOVAN [Concomitant]
  5. TUMS (CALCIUM CARBONATE) [Concomitant]

REACTIONS (14)
  - ASTHENIA [None]
  - BACK PAIN [None]
  - CONSTIPATION [None]
  - CYSTITIS [None]
  - FEELING ABNORMAL [None]
  - FLATULENCE [None]
  - HEADACHE [None]
  - INJECTION SITE ERYTHEMA [None]
  - INJECTION SITE HAEMORRHAGE [None]
  - INJECTION SITE PAIN [None]
  - MUSCLE SPASMS [None]
  - NAUSEA [None]
  - SCRATCH [None]
  - VISION BLURRED [None]
